FAERS Safety Report 24546959 (Version 3)
Quarter: 2025Q4

REPORT INFORMATION
  Report Type: Spontaneous
  Country: EU (occurrence: None)
  Receive Date: 20241025
  Receipt Date: 20251118
  Transmission Date: 20260117
  Serious: Yes (Death, Hospitalization, Other)
  Sender: ORGANON
  Company Number: None

PATIENT
  Age: 45 Year
  Sex: Female

DRUGS (41)
  1. BETAMETHASONE [Suspect]
     Active Substance: BETAMETHASONE
     Dosage: UNK
  2. BETAMETHASONE [Suspect]
     Active Substance: BETAMETHASONE
     Dosage: 4 MILLIGRAM, BID ( 4 MG X 2)
     Dates: start: 20021106
  3. NYSTATIN [Suspect]
     Active Substance: NYSTATIN
     Indication: Oral candidiasis
     Dosage: UNK
  4. NYSTATIN [Suspect]
     Active Substance: NYSTATIN
     Dosage: 12 ML (DAILY DOSE)
     Dates: start: 20020927, end: 20021009
  5. RABEPRAZOLE [Suspect]
     Active Substance: RABEPRAZOLE
     Dosage: UNK
  6. METOCLOPRAMIDE [Suspect]
     Active Substance: METOCLOPRAMIDE
     Dosage: UNK
  7. CEFACLOR [Suspect]
     Active Substance: CEFACLOR
     Indication: Cystitis
     Dosage: UNK
  8. CALCIUM LACTATE GLUCONATE ANHYDROUS [Suspect]
     Active Substance: CALCIUM LACTATE GLUCONATE ANHYDROUS
     Dosage: UNK
  9. CALCIUM LACTATE GLUCONATE ANHYDROUS [Suspect]
     Active Substance: CALCIUM LACTATE GLUCONATE ANHYDROUS
     Dosage: 1 GRAM
  10. CALCIUM GLUCONATE [Suspect]
     Active Substance: CALCIUM GLUCONATE
     Indication: Hypocalcaemia
     Dosage: UNK, WAS INFUSED WITH CALCIUM GLUCONATE
  11. CORTISONE ACETATE [Suspect]
     Active Substance: CORTISONE ACETATE
     Dosage: 25 MG X 2
     Dates: start: 20020927, end: 20021103
  12. CALCITRIOL [Suspect]
     Active Substance: CALCITRIOL
     Dosage: 0.5 MICROGRAM AT 08.HOURS
  13. FLUDROCORTISONE [Suspect]
     Active Substance: FLUDROCORTISONE
     Dosage: UNK
     Dates: start: 20020927, end: 20021024
  14. LEVOFLOXACIN [Suspect]
     Active Substance: LEVOFLOXACIN
     Indication: Antibiotic therapy
     Dosage: 500 MILLIGRAM
     Dates: start: 20021004, end: 20021019
  15. CANRENOIC ACID [Suspect]
     Active Substance: CANRENOIC ACID
     Indication: Oliguria
     Dosage: UNK, PER OS
     Dates: start: 20021004, end: 20021015
  16. CANRENOIC ACID [Suspect]
     Active Substance: CANRENOIC ACID
     Dosage: UNK
  17. ITRACONAZOLE [Suspect]
     Active Substance: ITRACONAZOLE
     Indication: Oral candidiasis
     Dosage: 100 MILLIGRAM/DAY
     Dates: start: 20021009, end: 20021106
  18. OMEPRAZOLE [Suspect]
     Active Substance: OMEPRAZOLE
     Dosage: 20 MILLIGRAM, QD
     Dates: start: 20020927, end: 20021103
  19. FUROSEMIDE [Suspect]
     Active Substance: FUROSEMIDE
     Indication: Oliguria
     Dosage: UNK
     Dates: start: 20021004, end: 20021015
  20. AMOXICILLIN [Suspect]
     Active Substance: AMOXICILLIN
     Indication: Antibiotic therapy
     Dosage: 1200 MG, TID (1200 MG X 3)
     Dates: start: 20021004, end: 20021019
  21. HALOPERIDOL [Suspect]
     Active Substance: HALOPERIDOL
     Indication: Hallucination
     Dosage: UNK
  22. HALOPERIDOL [Suspect]
     Active Substance: HALOPERIDOL
     Indication: Agitation
  23. CALCIUM CARBONATE [Suspect]
     Active Substance: CALCIUM CARBONATE
     Dosage: UNK
  24. CALCIUM CARBONATE [Suspect]
     Active Substance: CALCIUM CARBONATE
     Dosage: 1 GRAM
  25. DIAZEPAM [Suspect]
     Active Substance: DIAZEPAM
     Indication: Agitation
     Dosage: UNK, DAILY (QD)
     Dates: start: 20021009
  26. DIAZEPAM [Suspect]
     Active Substance: DIAZEPAM
     Indication: Hallucination
  27. PANTOPRAZOLE [Suspect]
     Active Substance: PANTOPRAZOLE
     Dosage: UNK
  28. ALUMINUM HYDROXIDE [Suspect]
     Active Substance: ALUMINUM HYDROXIDE
     Dosage: UNK
  29. INSULIN NOS [Suspect]
     Active Substance: INSULIN NOS
     Dosage: UNK
  30. PIPERACILLIN [Suspect]
     Active Substance: PIPERACILLIN
     Dosage: UNK
     Dates: start: 20021102, end: 20021104
  31. GENTAMICIN [Suspect]
     Active Substance: GENTAMICIN
     Dosage: UNK
  32. RANITIDINE [Suspect]
     Active Substance: RANITIDINE
     Dosage: UNK
  33. MAGNESIUM HYDROXIDE [Suspect]
     Active Substance: MAGNESIUM HYDROXIDE
     Dosage: UNK
  34. CHLORPHENIRAMINE MALEATE [Suspect]
     Active Substance: CHLORPHENIRAMINE MALEATE
     Dosage: UNK
  35. RIFAMYCIN [Suspect]
     Active Substance: RIFAMYCIN
     Dosage: UNK
  36. HYDROCORTISONE HEMISUCCINATE [Suspect]
     Active Substance: HYDROCORTISONE HEMISUCCINATE
     Dosage: 100 MILLIGRAM, BID (100 MG X 2)
     Dates: start: 20021103
  37. SODIUM CHLORIDE [Suspect]
     Active Substance: SODIUM CHLORIDE
     Dosage: UNK
  38. POTASSIUM CHLORIDE [Suspect]
     Active Substance: POTASSIUM CHLORIDE
     Indication: Hypokalaemia
     Dosage: UNK
  39. POVIDONE [Suspect]
     Active Substance: POVIDONE
     Dosage: UNK
  40. ALBUMIN HUMAN [Suspect]
     Active Substance: ALBUMIN HUMAN
     Dosage: UNK
  41. RABEPRAZOLE [Suspect]
     Active Substance: RABEPRAZOLE
     Dosage: UNK
     Dates: start: 20020927, end: 20020927

REACTIONS (1)
  - Toxic epidermal necrolysis [Fatal]
